FAERS Safety Report 23449893 (Version 2)
Quarter: 2024Q1

REPORT INFORMATION
  Report Type: Report from Study
  Country: CN (occurrence: CN)
  Receive Date: 20240129
  Receipt Date: 20240203
  Transmission Date: 20240410
  Serious: Yes (Hospitalization, Other)
  Sender: FDA-Public Use
  Company Number: CN-TAKEDA-2024TUS006893

PATIENT
  Age: 64 Year
  Sex: Female
  Weight: 55 kg

DRUGS (7)
  1. VEDOLIZUMAB [Suspect]
     Active Substance: VEDOLIZUMAB
     Indication: Colitis ulcerative
     Dosage: 300 MILLIGRAM
     Route: 042
     Dates: start: 20220801
  2. CALCIUM CARBONATE [Concomitant]
     Active Substance: CALCIUM CARBONATE
     Indication: Hypocalcaemia
     Dosage: 500 MILLIGRAM, TID
     Route: 048
     Dates: start: 20220802
  3. Live combined bifidobacterium, lactobacillus and enterococcus [Concomitant]
     Indication: Inflammatory bowel disease
     Dosage: 420 MILLIGRAM, TID
     Route: 048
     Dates: start: 20230220
  4. MESALAMINE [Concomitant]
     Active Substance: MESALAMINE
     Indication: Inflammatory bowel disease
     Dosage: 1000 MILLIGRAM, QID
     Route: 048
     Dates: start: 201810
  5. MESALAMINE [Concomitant]
     Active Substance: MESALAMINE
     Dosage: 0.5 GRAM, QD
     Route: 054
     Dates: start: 20230304
  6. FOLIC ACID [Concomitant]
     Active Substance: FOLIC ACID
     Indication: Inflammatory bowel disease
     Dosage: UNK UNK, QD
     Route: 048
     Dates: start: 202210
  7. FOLIC ACID [Concomitant]
     Active Substance: FOLIC ACID
     Indication: Nutritional supplementation

REACTIONS (3)
  - Squamous cell carcinoma of the vulva [Recovered/Resolved]
  - Vulval ulceration [Recovered/Resolved]
  - Cough [Recovered/Resolved]

NARRATIVE: CASE EVENT DATE: 20230801
